FAERS Safety Report 12037532 (Version 2)
Quarter: 2016Q2

REPORT INFORMATION
  Report Type: Report from Study
  Country: AR (occurrence: AR)
  Receive Date: 20160208
  Receipt Date: 20160503
  Transmission Date: 20160815
  Serious: Yes (Other)
  Sender: FDA-Public Use
  Company Number: PHHY2016AR014194

PATIENT
  Sex: Female

DRUGS (3)
  1. ULTIBRO BREEZHALER [Suspect]
     Active Substance: GLYCOPYRRONIUM\INDACATEROL
     Indication: LUNG DISORDER
     Dosage: 1 DF, QD (5 MONTH AGO APPROXIMATELY)
     Route: 065
     Dates: start: 2015
  2. EXFORGE [Suspect]
     Active Substance: AMLODIPINE BESYLATE\VALSARTAN
     Indication: HYPERTENSION
     Dosage: 1 DF (AMLODIPINE 5 MG, VALSARTAN 160 MG), QD
     Route: 065
  3. ULTIBRO BREEZHALER [Suspect]
     Active Substance: GLYCOPYRRONIUM\INDACATEROL
     Indication: PULMONARY FIBROSIS

REACTIONS (6)
  - Oropharyngeal pain [Recovering/Resolving]
  - Upper limb fracture [Recovering/Resolving]
  - Cough [Recovering/Resolving]
  - Throat irritation [Recovered/Resolved]
  - Product use issue [Unknown]
  - Blood pressure increased [Recovered/Resolved]
